FAERS Safety Report 16794165 (Version 1)
Quarter: 2019Q3

REPORT INFORMATION
  Report Type: Report from Study
  Country: US (occurrence: US)
  Receive Date: 20190911
  Receipt Date: 20190911
  Transmission Date: 20191005
  Serious: Yes (Other)
  Sender: FDA-Public Use
  Company Number: US-BAYER-2019-159165

PATIENT
  Age: 56 Year
  Sex: Female

DRUGS (3)
  1. BETASERON [Suspect]
     Active Substance: INTERFERON BETA-1B
     Indication: MULTIPLE SCLEROSIS
     Dosage: 0.3 MG, QOD
     Route: 058
  2. TRULICITY [Concomitant]
     Active Substance: DULAGLUTIDE
     Dosage: UNK
  3. BETASERON [Suspect]
     Active Substance: INTERFERON BETA-1B
     Indication: MULTIPLE SCLEROSIS
     Dosage: 0.25 UNK
     Route: 058
     Dates: start: 201208

REACTIONS (14)
  - Neck pain [Recovered/Resolved]
  - Cellulitis [Recovering/Resolving]
  - Balance disorder [None]
  - Fall [None]
  - Musculoskeletal chest pain [Recovered/Resolved]
  - Fatigue [None]
  - Injection site reaction [None]
  - Decreased activity [None]
  - Abdominal pain [Recovered/Resolved]
  - Ligament sprain [Recovering/Resolving]
  - Joint swelling [Recovering/Resolving]
  - Glycosylated haemoglobin increased [None]
  - Asthenia [None]
  - Arthralgia [Recovering/Resolving]

NARRATIVE: CASE EVENT DATE: 2018
